FAERS Safety Report 12628708 (Version 1)
Quarter: 2016Q3

REPORT INFORMATION
  Report Type: Report from Study
  Country: US (occurrence: US)
  Receive Date: 20160808
  Receipt Date: 20160808
  Transmission Date: 20161109
  Serious: Yes (Hospitalization)
  Sender: FDA-Public Use
  Company Number: US-ROCHE-748574

PATIENT
  Age: 79 Year
  Sex: Female
  Weight: 64.3 kg

DRUGS (3)
  1. FLUORODEOXYGLUCOSE [Concomitant]
     Dosage: INDICATION: PRE TREATMENT PET SCAN, UNIT DOSE: 16.4 MILLICURIES. DRUG REPORTED AS FLUORINE 18
     Route: 065
  2. ERLOTINIB [Suspect]
     Active Substance: ERLOTINIB
     Indication: PANCREATIC CARCINOMA
     Route: 048
     Dates: start: 20101122, end: 20101205
  3. VISMODEGIB [Suspect]
     Active Substance: VISMODEGIB
     Indication: PANCREATIC CARCINOMA
     Route: 048
     Dates: start: 20101122, end: 20101205

REACTIONS (6)
  - Hyponatraemia [Recovered/Resolved]
  - Ileus [Recovering/Resolving]
  - Dehydration [Recovering/Resolving]
  - Dyspnoea [Recovering/Resolving]
  - Hypokalaemia [Unknown]
  - Dyspepsia [Recovering/Resolving]

NARRATIVE: CASE EVENT DATE: 20101206
